FAERS Safety Report 8561630-9 (Version None)
Quarter: 2012Q3

REPORT INFORMATION
  Report Type: 
  Country: None (occurrence: None)
  Receive Date: 20120802
  Receipt Date: 20120725
  Transmission Date: 20120928
  Serious: Yes (Other)
  Sender: FDA-Public Use
  Company Number: JP-B.I. PHARMACEUTICALS,INC./RIDGEFIELD-2012-EU-03768GD

PATIENT
  Age: 8 Decade
  Sex: Male

DRUGS (1)
  1. MELOXICAM [Suspect]

REACTIONS (2)
  - SMALL INTESTINE ULCER [None]
  - HAEMORRHAGE [None]
